FAERS Safety Report 18538226 (Version 1)
Quarter: 2020Q4

REPORT INFORMATION
  Report Type: Spontaneous
  Country: IT (occurrence: IT)
  Receive Date: 20201124
  Receipt Date: 20201124
  Transmission Date: 20210114
  Serious: Yes (Death, Hospitalization, Other)
  Sender: FDA-Public Use
  Company Number: IT-NOVAST LABORATORIES LTD.-2020NOV000329

PATIENT
  Age: 55 Year
  Sex: Female

DRUGS (3)
  1. PAZOPANIB [Suspect]
     Active Substance: PAZOPANIB
     Indication: SPINDLE CELL SARCOMA
     Dosage: 800 MILLIGRAM, QD
     Route: 065
     Dates: start: 201910
  2. ZOLEDRONIC ACID [Concomitant]
     Active Substance: ZOLEDRONIC ACID
     Indication: SPINDLE CELL SARCOMA
     Dosage: UNK UNKNOWN
     Route: 065
  3. GEMCITABINE HYDROCHLORIDE. [Suspect]
     Active Substance: GEMCITABINE HYDROCHLORIDE
     Indication: SPINDLE CELL SARCOMA
     Dosage: UNK UNKNOWN
     Route: 065

REACTIONS (2)
  - Cardiac failure [Fatal]
  - Left ventricular dysfunction [Unknown]
